FAERS Safety Report 20599306 (Version 1)
Quarter: 2022Q1

REPORT INFORMATION
  Report Type: Spontaneous
  Country: US (occurrence: US)
  Receive Date: 20220315
  Receipt Date: 20220315
  Transmission Date: 20220423
  Serious: No
  Sender: FDA-Public Use
  Company Number: US-SANOFI-01006197

PATIENT

DRUGS (3)
  1. LANTUS [Suspect]
     Active Substance: INSULIN GLARGINE
     Indication: Immunisation
  2. SOLIQUA 100/33 [Suspect]
     Active Substance: INSULIN GLARGINE\LIXISENATIDE
     Indication: Immunisation
  3. TOUJEO [Suspect]
     Active Substance: INSULIN GLARGINE
     Indication: Immunisation

REACTIONS (2)
  - Product storage error [Unknown]
  - Product use in unapproved indication [Unknown]
